FAERS Safety Report 4292711-6 (Version None)
Quarter: 2004Q1

REPORT INFORMATION
  Report Type: 
  Country: None (occurrence: None)
  Receive Date: 20040126
  Receipt Date: 20030908
  Transmission Date: 20041129
  Serious: No
  Sender: FDA-Public Use
  Company Number: USA030946477

PATIENT
  Age: 63 Year
  Sex: Female
  Weight: 63 kg

DRUGS (8)
  1. FORTEO [Suspect]
     Indication: OSTEOPOROSIS
     Dosage: 20 UG/DAY
     Dates: start: 20030819
  2. XANAX [Concomitant]
  3. SERZONE [Concomitant]
  4. PREMARIN [Concomitant]
  5. PRILOSEC [Concomitant]
  6. AMBIEN [Concomitant]
  7. CITRACAL (CALCIUM CITRATE) [Concomitant]
  8. MULTIVITAMIN [Concomitant]

REACTIONS (9)
  - BALANCE DISORDER [None]
  - CONSTIPATION [None]
  - DISTURBANCE IN ATTENTION [None]
  - DIZZINESS [None]
  - FATIGUE [None]
  - FEELING ABNORMAL [None]
  - INJECTION SITE PAIN [None]
  - NERVOUSNESS [None]
  - VISION BLURRED [None]
